FAERS Safety Report 11777277 (Version 1)
Quarter: 2015Q4

REPORT INFORMATION
  Report Type: Spontaneous
  Country: US (occurrence: US)
  Receive Date: 20151125
  Receipt Date: 20151125
  Transmission Date: 20160304
  Serious: No
  Sender: FDA-Public Use
  Company Number: US-MALLINCKRODT-T201502059

PATIENT
  Sex: Female

DRUGS (1)
  1. GABLOFEN [Suspect]
     Active Substance: BACLOFEN
     Indication: MUSCLE SPASTICITY
     Dosage: 792.1 MCG/DAY, FLEX
     Route: 037

REACTIONS (4)
  - Unevaluable event [Unknown]
  - Pruritus [Recovered/Resolved]
  - Device inversion [Unknown]
  - Myoclonus [Recovered/Resolved]
